FAERS Safety Report 9667895 (Version 2)
Quarter: 2013Q4

REPORT INFORMATION
  Report Type: Spontaneous
  Country: FR (occurrence: FR)
  Receive Date: 20131104
  Receipt Date: 20131107
  Transmission Date: 20140711
  Serious: Yes (Hospitalization)
  Sender: FDA-Public Use
  Company Number: FR-PFIZER INC-2013310923

PATIENT
  Age: 84 Year
  Sex: Female

DRUGS (9)
  1. AMLOR [Suspect]
     Indication: HYPERTENSION
     Dosage: 5 MG, DAILY
     Route: 048
     Dates: start: 20130815, end: 20130920
  2. XATRAL [Suspect]
     Indication: URINARY RETENTION
     Dosage: 10 MG, DAILY
     Route: 048
     Dates: start: 20130815, end: 20130920
  3. ATENOLOL [Suspect]
     Indication: HYPERTENSION
     Dosage: 100 MG, DAILY
     Route: 048
     Dates: start: 20130815
  4. ATENOLOL [Suspect]
     Dosage: 50 MG, DAILY
  5. KARDEGIC [Concomitant]
     Dosage: 160 MG
  6. LEVEMIR [Concomitant]
  7. INEXIUM /01479302/ [Concomitant]
     Dosage: 20 MG
  8. TAHOR [Concomitant]
     Dosage: 10 MG
  9. FRESUBIN [Concomitant]

REACTIONS (3)
  - Hypotension [Recovered/Resolved]
  - Malaise [Recovered/Resolved]
  - Fall [Unknown]
